FAERS Safety Report 18141764 (Version 2)
Quarter: 2020Q3

REPORT INFORMATION
  Report Type: Spontaneous
  Country: US (occurrence: US)
  Receive Date: 20200812
  Receipt Date: 20200831
  Transmission Date: 20201103
  Serious: Yes (Hospitalization, Other)
  Sender: FDA-Public Use
  Company Number: NVSC2020US219143

PATIENT
  Age: 59 Year
  Sex: Male

DRUGS (5)
  1. R GDP [Concomitant]
     Indication: CHEMOTHERAPY
     Dosage: UNK
     Route: 065
  2. IFOSFAMIDE. [Suspect]
     Active Substance: IFOSFAMIDE
     Indication: DIFFUSE LARGE B-CELL LYMPHOMA RECURRENT
     Dosage: UNK
     Route: 065
  3. RICE [Concomitant]
     Active Substance: BROWN RICE\RICE
     Indication: CHEMOTHERAPY
     Route: 065
  4. LENALIDOMIDE [Concomitant]
     Active Substance: LENALIDOMIDE
     Indication: CHEMOTHERAPY
     Dosage: UNK
     Route: 065
  5. KYMRIAH [Suspect]
     Active Substance: TISAGENLECLEUCEL
     Indication: DIFFUSE LARGE B-CELL LYMPHOMA RECURRENT
     Dosage: UNK
     Route: 042
     Dates: start: 20180521

REACTIONS (18)
  - Hypotension [Unknown]
  - Cytomegalovirus viraemia [Unknown]
  - Cytokine release syndrome [Unknown]
  - Meningoencephalitis herpetic [Unknown]
  - Thrombocytopenia [Not Recovered/Not Resolved]
  - Pyrexia [Unknown]
  - Staphylococcal infection [Unknown]
  - Immune effector cell-associated neurotoxicity syndrome [Unknown]
  - Bronchopulmonary aspergillosis [Unknown]
  - Unresponsive to stimuli [Unknown]
  - Septic shock [Unknown]
  - C-reactive protein increased [Unknown]
  - Pneumonia [Unknown]
  - Cytopenia [Unknown]
  - Mycobacterium avium complex infection [Unknown]
  - Serum ferritin increased [Unknown]
  - Tachycardia [Unknown]
  - Neutropenia [Recovered/Resolved]

NARRATIVE: CASE EVENT DATE: 20190527
